FAERS Safety Report 6539336-7 (Version None)
Quarter: 2010Q1

REPORT INFORMATION
  Report Type: 
  Country: None (occurrence: None)
  Receive Date: 20100115
  Receipt Date: 20100111
  Transmission Date: 20100710
  Serious: Yes (Death, Other)
  Sender: FDA-Public Use
  Company Number: PHHY2009CA59542

PATIENT
  Sex: Male

DRUGS (3)
  1. CLOZARIL [Suspect]
     Indication: SCHIZOPHRENIA
     Dosage: 300 MG
     Route: 048
     Dates: start: 20090901
  2. RISPERIDONE [Concomitant]
     Dosage: 5 MG, QHS
     Route: 048
  3. RISPERIDONE [Concomitant]
     Dosage: 2.5 MG, QHS
     Route: 048

REACTIONS (2)
  - CONVULSION [None]
  - DEATH [None]
